FAERS Safety Report 11145912 (Version 4)
Quarter: 2017Q1

REPORT INFORMATION
  Report Type: Spontaneous
  Country: JP (occurrence: JP)
  Receive Date: 20150528
  Receipt Date: 20170324
  Transmission Date: 20170428
  Serious: Yes (Hospitalization)
  Sender: FDA-Public Use
  Company Number: JP-IPSEN BIOPHARMACEUTICALS, INC.-2015-5077

PATIENT
  Age: 81 Year
  Sex: Female

DRUGS (20)
  1. NEUROVITAN [Concomitant]
     Active Substance: VITAMINS
     Indication: NEUROPATHY PERIPHERAL
     Route: 048
     Dates: start: 2004
  2. PERSANTIN [Concomitant]
     Active Substance: DIPYRIDAMOLE
     Indication: ARRHYTHMIA
     Route: 048
  3. SOMATULINE 90MG [Suspect]
     Active Substance: LANREOTIDE ACETATE
     Dosage: 60 MG
     Route: 058
     Dates: start: 20140115, end: 20141009
  4. HALFDIGOXIN KY [Concomitant]
     Indication: CARDIAC FAILURE
     Route: 048
     Dates: start: 2004
  5. DOGMATYL [Concomitant]
     Active Substance: SULPIRIDE
     Indication: DEPRESSION
     Route: 048
     Dates: start: 2004
  6. DOGMATYL [Concomitant]
     Active Substance: SULPIRIDE
     Indication: PROPHYLAXIS
  7. TOUGHMAC E [Concomitant]
     Active Substance: AMYLASE\LIPASE\PROTEASE
     Indication: DYSBACTERIOSIS
     Route: 048
     Dates: start: 2004
  8. BAYASPIRIN [Concomitant]
     Active Substance: ASPIRIN
     Indication: THROMBOSIS PROPHYLAXIS
     Route: 048
     Dates: start: 2004
  9. TOUGHMAC E [Concomitant]
     Active Substance: AMYLASE\LIPASE\PROTEASE
     Indication: GASTRITIS PROPHYLAXIS
  10. SOMATULINE 90MG [Suspect]
     Active Substance: LANREOTIDE ACETATE
     Indication: ACROMEGALY
     Dosage: 90 MG
     Route: 058
     Dates: start: 20141104, end: 20150317
  11. BAYASPIRIN [Concomitant]
     Active Substance: ASPIRIN
     Indication: DYSLIPIDAEMIA
  12. METLIGINE [Concomitant]
     Active Substance: MIDODRINE HYDROCHLORIDE
     Indication: DIZZINESS
     Route: 048
  13. LIPITOR [Concomitant]
     Active Substance: ATORVASTATIN CALCIUM
     Indication: DYSLIPIDAEMIA
     Route: 048
  14. SOMATULINE 90MG [Suspect]
     Active Substance: LANREOTIDE ACETATE
     Dosage: 90 MG
     Route: 058
     Dates: start: 201505
  15. BIO-THREE [Concomitant]
     Active Substance: HERBALS
     Indication: DYSBACTERIOSIS
     Route: 048
     Dates: start: 2004
  16. BIO-THREE [Concomitant]
     Active Substance: HERBALS
     Indication: CONSTIPATION PROPHYLAXIS
  17. NEUROVITAN [Concomitant]
     Active Substance: VITAMINS
     Indication: THROMBOSIS PROPHYLAXIS
  18. PERSANTIN [Concomitant]
     Active Substance: DIPYRIDAMOLE
     Indication: THROMBOSIS PROPHYLAXIS
  19. LENDORMIN [Concomitant]
     Active Substance: BROTIZOLAM
     Indication: INSOMNIA
     Route: 048
  20. LENDORMIN [Concomitant]
     Active Substance: BROTIZOLAM
     Indication: PROPHYLAXIS

REACTIONS (1)
  - Gastric dilatation [Recovered/Resolved]

NARRATIVE: CASE EVENT DATE: 20150413
